FAERS Safety Report 11907906 (Version 3)
Quarter: 2016Q1

REPORT INFORMATION
  Report Type: Spontaneous
  Country: US (occurrence: US)
  Receive Date: 20160111
  Receipt Date: 20160229
  Transmission Date: 20160526
  Serious: No
  Sender: FDA-Public Use
  Company Number: US-LEO PHARMA-239537

PATIENT
  Age: 64 Year
  Sex: Female

DRUGS (2)
  1. PICATO [Suspect]
     Active Substance: INGENOL MEBUTATE
     Indication: ACTINIC KERATOSIS
     Dates: start: 20160103, end: 20160105
  2. PICATO [Suspect]
     Active Substance: INGENOL MEBUTATE
     Indication: PRECANCEROUS SKIN LESION
     Route: 061
     Dates: start: 20160103, end: 20160104

REACTIONS (11)
  - Blister [Recovered/Resolved]
  - Application site pruritus [Recovered/Resolved]
  - Drug administered at inappropriate site [Unknown]
  - Application site dryness [Recovered/Resolved]
  - Accidental exposure to product [Unknown]
  - Erythema [Recovered/Resolved]
  - Application site vesicles [Recovered/Resolved]
  - Application site scab [Recovered/Resolved]
  - Scab [Recovered/Resolved]
  - No adverse event [Unknown]
  - Application site erythema [Recovered/Resolved]

NARRATIVE: CASE EVENT DATE: 20160103
